FAERS Safety Report 8997652 (Version 3)
Quarter: 2013Q3

REPORT INFORMATION
  Report Type: Report from Study
  Country: JP (occurrence: JP)
  Receive Date: 20130104
  Receipt Date: 20130903
  Transmission Date: 20140515
  Serious: No
  Sender: FDA-Public Use
  Company Number: JP-GILEAD-E2B_00001462

PATIENT
  Age: 75 Year
  Sex: Female

DRUGS (10)
  1. AMBRISENTAN [Suspect]
     Indication: PULMONARY ARTERIAL HYPERTENSION
     Dosage: 5 MG, QD
     Route: 048
     Dates: start: 20110803, end: 20111122
  2. AMBRISENTAN [Suspect]
     Dosage: 7.5 MG, UNK
     Route: 048
     Dates: start: 20111123
  3. JUVELA N [Concomitant]
     Dosage: 200MG THREE TIMES PER DAY
     Route: 048
  4. JUVELA N [Concomitant]
     Dosage: 200MG THREE TIMES PER DAY
     Route: 048
  5. TEPRENONE [Concomitant]
     Dosage: 50MG THREE TIMES PER DAY
     Route: 048
  6. TEPRENONE [Concomitant]
     Dosage: 50MG THREE TIMES PER DAY
     Route: 048
  7. NEUQUINON [Concomitant]
     Dosage: 10MG THREE TIMES PER DAY
     Route: 048
  8. NEUQUINON [Concomitant]
     Dosage: 10MG THREE TIMES PER DAY
     Route: 048
  9. URSODEOXYCHOLIC ACID [Concomitant]
     Dosage: 200MG THREE TIMES PER DAY
     Route: 048
  10. URSODEOXYCHOLIC ACID [Concomitant]
     Dosage: 200MG THREE TIMES PER DAY
     Route: 048

REACTIONS (4)
  - Oxygen saturation decreased [Recovered/Resolved]
  - Epistaxis [Recovered/Resolved]
  - Photosensitivity reaction [Recovered/Resolved]
  - Headache [Recovered/Resolved]
